FAERS Safety Report 9125944 (Version 1)
Quarter: 2013Q1

REPORT INFORMATION
  Report Type: Spontaneous
  Country: ES (occurrence: ES)
  Receive Date: 20130228
  Receipt Date: 20130228
  Transmission Date: 20140127
  Serious: Yes (Other)
  Sender: FDA-Public Use
  Company Number: ES-009507513-1302ESP011726

PATIENT
  Age: 74 Year
  Sex: Female
  Weight: 65 kg

DRUGS (3)
  1. INVANZ [Suspect]
     Indication: INFECTED SKIN ULCER
     Dosage: 1 G, QD
     Route: 030
     Dates: start: 20121010, end: 20121020
  2. LINEZOLID [Suspect]
     Indication: INFECTED SKIN ULCER
     Dosage: 0.6 G, BID
     Route: 048
     Dates: start: 20121010, end: 20121020
  3. FLUCONAZOLE [Concomitant]
     Indication: INFECTED SKIN ULCER
     Dosage: 400 MG, BID
     Route: 048
     Dates: start: 20121010, end: 20121020

REACTIONS (1)
  - Status epilepticus [Recovered/Resolved]
